FAERS Safety Report 5875238-7 (Version None)
Quarter: 2008Q3

REPORT INFORMATION
  Report Type: 
  Country: None (occurrence: None)
  Receive Date: 20080909
  Receipt Date: 20080903
  Transmission Date: 20090109
  Serious: Yes (Death)
  Sender: FDA-Public Use
  Company Number: US-ASTRAZENECA-2008AC02404

PATIENT

DRUGS (2)
  1. PROPOFOL [Suspect]
     Route: 042
  2. VASOPRESSOR AGENTS [Concomitant]

REACTIONS (5)
  - CIRCULATORY COLLAPSE [None]
  - METABOLIC ACIDOSIS [None]
  - PROPOFOL INFUSION SYNDROME [None]
  - RENAL FAILURE ACUTE [None]
  - RHABDOMYOLYSIS [None]
